FAERS Safety Report 15293656 (Version 1)
Quarter: 2018Q3

REPORT INFORMATION
  Report Type: Spontaneous
  Country: US (occurrence: US)
  Receive Date: 20180820
  Receipt Date: 20180820
  Transmission Date: 20181010
  Serious: No
  Sender: FDA-Public Use
  Company Number: US-JNJFOC-20180727203

PATIENT
  Age: 80 Year
  Sex: Male
  Weight: 72.58 kg

DRUGS (5)
  1. ERLEADA [Suspect]
     Active Substance: APALUTAMIDE
     Indication: HORMONE-REFRACTORY PROSTATE CANCER
     Route: 048
     Dates: start: 20180511, end: 20180626
  2. SIMVASTATIN. [Concomitant]
     Active Substance: SIMVASTATIN
  3. ELIGARD [Concomitant]
     Active Substance: LEUPROLIDE ACETATE
  4. LISINOPRIL. [Concomitant]
     Active Substance: LISINOPRIL
  5. METOPROLOL. [Concomitant]
     Active Substance: METOPROLOL

REACTIONS (2)
  - Nausea [Unknown]
  - Ageusia [Unknown]

NARRATIVE: CASE EVENT DATE: 201806
